FAERS Safety Report 11243636 (Version 3)
Quarter: 2016Q1

REPORT INFORMATION
  Report Type: Spontaneous
  Country: US (occurrence: US)
  Receive Date: 20150707
  Receipt Date: 20160309
  Transmission Date: 20160525
  Serious: Yes (Death, Other)
  Sender: FDA-Public Use
  Company Number: US-SA-2015SA095611

PATIENT
  Age: 78 Year
  Sex: Male
  Weight: 101 kg

DRUGS (3)
  1. LANTUS SOLOSTAR [Suspect]
     Active Substance: INSULIN GLARGINE
     Indication: DIABETES MELLITUS
     Dosage: STRENGTH- 15 MG LANTUS SOLOSTAR DOSE:15 UNIT(S)
     Route: 065
     Dates: start: 20150512, end: 20150513
  2. SOLOSTAR [Concomitant]
     Active Substance: DEVICE
     Indication: DIABETES MELLITUS
     Dates: start: 20150501
  3. LANTUS SOLOSTAR [Suspect]
     Active Substance: INSULIN GLARGINE
     Indication: DIABETES MELLITUS
     Dosage: STRENGTH- 15 MG LANTUS SOLOSTAR
     Route: 065
     Dates: start: 2015

REACTIONS (4)
  - Retinal vein occlusion [Unknown]
  - Incorrect dose administered [Unknown]
  - Death [Fatal]
  - Drug ineffective [Unknown]
